FAERS Safety Report 11867907 (Version 4)
Quarter: 2017Q1

REPORT INFORMATION
  Report Type: Report from Study
  Country: KR (occurrence: KR)
  Receive Date: 20151224
  Receipt Date: 20170328
  Transmission Date: 20170428
  Serious: Yes (Hospitalization, Other)
  Sender: FDA-Public Use
  Company Number: KR-JNJFOC-20151215648

PATIENT
  Age: 69 Year
  Sex: Female
  Weight: 60.2 kg

DRUGS (13)
  1. CANAGLIFLOZIN [Suspect]
     Active Substance: CANAGLIFLOZIN
     Indication: TYPE 2 DIABETES MELLITUS
     Route: 048
     Dates: start: 20151026, end: 20151112
  2. PREDNISOLONE. [Concomitant]
     Active Substance: PREDNISOLONE
     Route: 065
  3. ROSUVASTATIN. [Concomitant]
     Active Substance: ROSUVASTATIN
     Route: 065
  4. CILOSTAZOL. [Concomitant]
     Active Substance: CILOSTAZOL
     Route: 065
  5. ASPIRIN. [Concomitant]
     Active Substance: ASPIRIN
     Route: 065
  6. CANAGLIFLOZIN [Suspect]
     Active Substance: CANAGLIFLOZIN
     Indication: TYPE 2 DIABETES MELLITUS
     Route: 048
     Dates: start: 20150921, end: 20151025
  7. TEPRENONE [Concomitant]
     Active Substance: TEPRENONE
     Route: 065
  8. CARVEDILOL. [Concomitant]
     Active Substance: CARVEDILOL
     Route: 065
  9. DUROBA [Concomitant]
     Indication: RHEUMATIC DISORDER
     Route: 065
  10. CANAGLIFLOZIN [Suspect]
     Active Substance: CANAGLIFLOZIN
     Indication: TYPE 2 DIABETES MELLITUS
     Route: 048
     Dates: start: 20150323, end: 20150920
  11. LEFLUNOMIDE. [Concomitant]
     Active Substance: LEFLUNOMIDE
     Route: 065
  12. CELECOXIB. [Concomitant]
     Active Substance: CELECOXIB
     Route: 065
  13. EPROSARTAN [Concomitant]
     Active Substance: EPROSARTAN
     Route: 065

REACTIONS (3)
  - Pyelonephritis acute [Recovered/Resolved]
  - Septic shock [Recovered/Resolved]
  - Acidosis [Recovered/Resolved]

NARRATIVE: CASE EVENT DATE: 20151113
